FAERS Safety Report 8996626 (Version 3)
Quarter: 2013Q4

REPORT INFORMATION
  Report Type: Spontaneous
  Country: US (occurrence: US)
  Receive Date: 20130104
  Receipt Date: 20131115
  Transmission Date: 20140711
  Serious: Yes (Hospitalization, Other)
  Sender: FDA-Public Use
  Company Number: US-PFIZER INC-2012334280

PATIENT
  Age: 36 Year
  Sex: Female

DRUGS (3)
  1. CHANTIX [Suspect]
     Dosage: CONTINUING MONTH PACK
     Dates: start: 20080317
  2. CHANTIX [Suspect]
     Dosage: UNK
     Dates: start: 20081101, end: 20090410
  3. CHANTIX [Suspect]
     Dosage: STARTING MONTH PACK
     Dates: start: 20090317

REACTIONS (5)
  - Intentional overdose [Unknown]
  - Suicide attempt [Unknown]
  - Depression [Unknown]
  - Mood altered [Unknown]
  - Abnormal behaviour [Unknown]
